FAERS Safety Report 5247218-6 (Version None)
Quarter: 2007Q1

REPORT INFORMATION
  Report Type: 
  Country: None (occurrence: None)
  Receive Date: 20070220
  Receipt Date: 20070208
  Transmission Date: 20070707
  Serious: Yes (Other)
  Sender: FDA-Public Use
  Company Number: 2007SP002496

PATIENT
  Age: 56 Year
  Sex: Male
  Weight: 95.2554 kg

DRUGS (2)
  1. PEG-INTRON [Suspect]
     Indication: HEPATITIS C
     Dosage: 150 MCG;QW
     Dates: start: 20060119
  2. REBETOL [Suspect]
     Indication: HEPATITIS C
     Dosage: 1200 MG;QD;PO
     Route: 048
     Dates: start: 20060119

REACTIONS (15)
  - ABASIA [None]
  - ABNORMAL FAECES [None]
  - ALOPECIA [None]
  - ASTHENIA [None]
  - BLINDNESS [None]
  - DEPRESSION [None]
  - EPISTAXIS [None]
  - FALL [None]
  - HEADACHE [None]
  - HEPATIC PAIN [None]
  - INSOMNIA [None]
  - MALAISE [None]
  - NAUSEA [None]
  - RECTAL HAEMORRHAGE [None]
  - VOMITING [None]
